FAERS Safety Report 17980993 (Version 1)
Quarter: 2020Q3

REPORT INFORMATION
  Report Type: Spontaneous
  Country: GB (occurrence: GB)
  Receive Date: 20200704
  Receipt Date: 20200704
  Transmission Date: 20201103
  Serious: Yes (Other)
  Sender: FDA-Public Use
  Company Number: GB-TEVA-2020-GB-1794256

PATIENT
  Age: 19 Year
  Sex: Female
  Weight: 18 kg

DRUGS (3)
  1. TRIMETHOPRIM. [Suspect]
     Active Substance: TRIMETHOPRIM
     Dosage: 400 MG
     Route: 048
     Dates: start: 20200522
  2. EPIDUO [Concomitant]
     Active Substance: ADAPALENE\BENZOYL PEROXIDE
     Dosage: APPLY, 1 DF
     Dates: start: 20200129
  3. DOXYCYCLINE. [Concomitant]
     Active Substance: DOXYCYCLINE
     Dosage: 1 DF
     Dates: start: 20200129, end: 20200428

REACTIONS (5)
  - Headache [Unknown]
  - Rash maculo-papular [Recovering/Resolving]
  - Pruritus [Unknown]
  - Musculoskeletal stiffness [Unknown]
  - Chromaturia [Unknown]

NARRATIVE: CASE EVENT DATE: 20200529
